FAERS Safety Report 18811075 (Version 5)
Quarter: 2021Q1

REPORT INFORMATION
  Report Type: Report from Study
  Country: GR (occurrence: GR)
  Receive Date: 20210129
  Receipt Date: 20210308
  Transmission Date: 20210419
  Serious: Yes (Hospitalization)
  Sender: FDA-Public Use
  Company Number: GR-CELGENEUS-GRC-20210106283

PATIENT
  Age: 72 Year
  Sex: Male
  Weight: 70 kg

DRUGS (21)
  1. ABRAXANE [Suspect]
     Active Substance: PACLITAXEL
     Indication: PANCREATIC CARCINOMA METASTATIC
     Route: 041
     Dates: start: 20201207, end: 20201223
  2. FENTADUR [Concomitant]
     Dosage: 4 MICROGRAM
     Route: 062
     Dates: start: 20201216, end: 20210221
  3. SOLDESANIL [Concomitant]
     Dosage: 2 MILLIGRAM
     Route: 048
     Dates: start: 20201217, end: 20201223
  4. NEXIUM [Concomitant]
     Active Substance: ESOMEPRAZOLE MAGNESIUM
     Route: 048
  5. SALOSPIR [Concomitant]
     Active Substance: ASPIRIN
     Indication: HYPERTENSION
     Dosage: 100 MILLIGRAM
     Route: 048
     Dates: start: 20180410, end: 20210221
  6. CREON [Concomitant]
     Active Substance: PANCRELIPASE AMYLASE\PANCRELIPASE LIPASE\PANCRELIPASE PROTEASE
     Indication: PANCREATIC CARCINOMA
     Dosage: 150 MILLIGRAM
     Route: 048
     Dates: start: 20201027, end: 20210221
  7. SOLDESANIL [Concomitant]
     Dosage: 1 MILLIGRAM
     Route: 048
     Dates: start: 20201224, end: 20210104
  8. DEXAMETHASONE. [Concomitant]
     Active Substance: DEXAMETHASONE
     Indication: PREMEDICATION
     Route: 041
     Dates: start: 20201207, end: 20201223
  9. ONDANSETRON [Concomitant]
     Active Substance: ONDANSETRON
     Indication: PREMEDICATION
     Route: 041
     Dates: start: 20201207, end: 20201223
  10. NEXIUM [Concomitant]
     Active Substance: ESOMEPRAZOLE MAGNESIUM
     Indication: PROPHYLAXIS
     Dosage: 20 MILLIGRAM
     Route: 048
     Dates: start: 20201027, end: 20210221
  11. RAMUCIRUMAB [Suspect]
     Active Substance: RAMUCIRUMAB
     Indication: PANCREATIC CARCINOMA METASTATIC
     Route: 041
     Dates: start: 20201207, end: 20201207
  12. LIBEPROSTA [Concomitant]
     Route: 048
  13. ZYLAPOUR [Concomitant]
     Active Substance: ALLOPURINOL
     Indication: PROPHYLAXIS
     Dosage: 100 MILLIGRAM
     Route: 048
     Dates: start: 20191003, end: 20210221
  14. GLUCOPHAGE [Concomitant]
     Active Substance: METFORMIN HYDROCHLORIDE
     Indication: TYPE 2 DIABETES MELLITUS
     Dosage: 850 MILLIGRAM
     Route: 048
     Dates: start: 20201027, end: 20210221
  15. FENTADUR [Concomitant]
     Indication: ABDOMINAL PAIN
     Dosage: 25 MICROGRAM
     Route: 062
     Dates: start: 20201207, end: 20201216
  16. GEMCITABINE. [Suspect]
     Active Substance: GEMCITABINE
     Indication: PANCREATIC CARCINOMA METASTATIC
     Route: 041
     Dates: start: 20201207, end: 20201223
  17. DEXAMETHASONE. [Concomitant]
     Active Substance: DEXAMETHASONE
     Route: 048
     Dates: start: 20201207, end: 20201225
  18. LIBEPROSTA [Concomitant]
     Indication: BENIGN PROSTATIC HYPERPLASIA
     Dosage: 80 MILLIGRAM
     Route: 041
     Dates: start: 2012, end: 20210221
  19. MOZARTAN [Concomitant]
     Indication: HYPERTENSION
     Dosage: 100 MILLIGRAM
     Route: 048
     Dates: start: 2013, end: 20210221
  20. ZALDIAR [Concomitant]
     Active Substance: ACETAMINOPHEN\TRAMADOL HYDROCHLORIDE
     Indication: ABDOMINAL PAIN
     Dosage: 375?325 MG
     Route: 048
     Dates: start: 20201103, end: 20210221
  21. SOLDESANIL [Concomitant]
     Indication: BLOOD BILIRUBIN INCREASED
     Dosage: 4 MILLIGRAM
     Route: 048
     Dates: start: 20201201, end: 20201216

REACTIONS (1)
  - Pancreatic fistula [Not Recovered/Not Resolved]

NARRATIVE: CASE EVENT DATE: 20210122
